FAERS Safety Report 6551656-9 (Version None)
Quarter: 2010Q1

REPORT INFORMATION
  Report Type: 
  Country: None (occurrence: None)
  Receive Date: 20100126
  Receipt Date: 20100118
  Transmission Date: 20100710
  Serious: Yes (Death, Hospitalization, Other)
  Sender: FDA-Public Use
  Company Number: FR-JNJFOC-20091207811

PATIENT
  Age: 74 Year
  Sex: Male
  Weight: 74 kg

DRUGS (13)
  1. REMICADE [Suspect]
     Indication: RHEUMATOID ARTHRITIS
     Route: 042
  2. REMICADE [Suspect]
     Route: 042
  3. REMICADE [Suspect]
     Dosage: 5TH INFUSION
     Route: 042
  4. REMICADE [Suspect]
     Route: 042
  5. REMICADE [Suspect]
     Route: 042
  6. ARAVA [Suspect]
     Indication: DRUG USE FOR UNKNOWN INDICATION
  7. ANTICOAGULANT NOS [Suspect]
     Indication: ATRIAL FIBRILLATION
  8. CORTANCYL [Concomitant]
     Dosage: DOSE DECREASED AND THEN INCREASED
  9. CORTANCYL [Concomitant]
  10. METHOTREXATE [Concomitant]
  11. ALENDRONATE SODIUM [Concomitant]
     Dosage: ^1DF^
  12. IXPRIM [Concomitant]
     Dosage: ^3DF^
  13. PARIET [Concomitant]
     Dosage: ^20^

REACTIONS (9)
  - ATRIAL FIBRILLATION [None]
  - CONFUSIONAL STATE [None]
  - CYTOLYTIC HEPATITIS [None]
  - FALL [None]
  - HEAD INJURY [None]
  - HISTIOCYTOSIS HAEMATOPHAGIC [None]
  - INFLAMMATION [None]
  - INTERSTITIAL LUNG DISEASE [None]
  - SUBDURAL HAEMATOMA [None]
